FAERS Safety Report 9828417 (Version 1)
Quarter: 2014Q1

REPORT INFORMATION
  Report Type: Report from Study
  Country: BR (occurrence: BR)
  Receive Date: 20140117
  Receipt Date: 20140117
  Transmission Date: 20141002
  Serious: Yes (Hospitalization, Other)
  Sender: FDA-Public Use
  Company Number: BR-ABBVIE-14P-020-1188105-00

PATIENT
  Age: 50 Year
  Sex: Female
  Weight: 52 kg

DRUGS (1)
  1. HUMIRA [Suspect]
     Indication: ANKYLOSING SPONDYLITIS
     Route: 058
     Dates: start: 201311, end: 20131209

REACTIONS (5)
  - Anaemia [Recovering/Resolving]
  - Immunodeficiency [Recovering/Resolving]
  - Tuberculosis [Recovering/Resolving]
  - Pneumonia [Recovering/Resolving]
  - Pain [Not Recovered/Not Resolved]
